FAERS Safety Report 9292757 (Version 1)
Quarter: 2013Q2

REPORT INFORMATION
  Report Type: Spontaneous
  Country: US (occurrence: None)
  Receive Date: 20130515
  Receipt Date: 20130515
  Transmission Date: 20140414
  Serious: Yes (Other)
  Sender: FDA-Public Use
  Company Number: None

PATIENT
  Age: 59 Year
  Sex: Female
  Weight: 55.34 kg

DRUGS (1)
  1. CIPROFLOXACIN [Suspect]
     Dosage: 1 TAB
     Route: 048
     Dates: start: 20130422

REACTIONS (5)
  - Muscular weakness [None]
  - Epistaxis [None]
  - Chest pain [None]
  - Headache [None]
  - Pain in extremity [None]
